FAERS Safety Report 22154964 (Version 1)
Quarter: 2023Q1

REPORT INFORMATION
  Report Type: Report from Study
  Country: US (occurrence: US)
  Receive Date: 20230330
  Receipt Date: 20230330
  Transmission Date: 20230418
  Serious: Yes (Other)
  Sender: FDA-Public Use
  Company Number: US-ABBVIE-4706625

PATIENT
  Age: 55 Year
  Sex: Female

DRUGS (1)
  1. HUMIRA [Suspect]
     Active Substance: ADALIMUMAB
     Indication: Rheumatoid arthritis
     Dosage: HUMIRA CITRATE FREE PEN
     Route: 058
     Dates: start: 20211103

REACTIONS (11)
  - Renal disorder [Unknown]
  - Urinary tract infection [Unknown]
  - Pain [Unknown]
  - Blood pressure decreased [Unknown]
  - Adverse drug reaction [Not Recovered/Not Resolved]
  - Stress fracture [Unknown]
  - Denture wearer [Recovered/Resolved]
  - Gastrectomy [Unknown]
  - Unevaluable event [Unknown]
  - Arthritis [Unknown]
  - Skin discolouration [Unknown]

NARRATIVE: CASE EVENT DATE: 20220501
